FAERS Safety Report 22808354 (Version 4)
Quarter: 2024Q4

REPORT INFORMATION
  Report Type: Report from Study
  Country: US (occurrence: US)
  Receive Date: 20230810
  Receipt Date: 20241211
  Transmission Date: 20250115
  Serious: No
  Sender: NOVARTIS
  Company Number: US-002147023-NVSC2023US174729

PATIENT
  Sex: Male

DRUGS (1)
  1. COSENTYX [Suspect]
     Active Substance: SECUKINUMAB
     Indication: Psoriasis
     Dosage: 150 MG, QW
     Route: 058
     Dates: start: 20230802

REACTIONS (1)
  - Incorrect dose administered [Unknown]
